FAERS Safety Report 8435360-8 (Version None)
Quarter: 2012Q2

REPORT INFORMATION
  Report Type: 
  Country: None (occurrence: None)
  Receive Date: 20120614
  Receipt Date: 20120612
  Transmission Date: 20120825
  Serious: Yes (Death)
  Sender: FDA-Public Use
  Company Number: US-PFIZER INC-2011002736

PATIENT
  Age: 62 Year
  Sex: Female

DRUGS (2)
  1. VERAPAMIL HCL [Suspect]
  2. TRAMADOL HCL [Suspect]

REACTIONS (1)
  - COMPLETED SUICIDE [None]
